FAERS Safety Report 12716921 (Version 2)
Quarter: 2016Q4

REPORT INFORMATION
  Report Type: Spontaneous
  Country: FR (occurrence: FR)
  Receive Date: 20160906
  Receipt Date: 20161216
  Transmission Date: 20170207
  Serious: Yes (Other)
  Sender: FDA-Public Use
  Company Number: FR-PFIZER INC-2016412256

PATIENT
  Age: 65 Year
  Sex: Female

DRUGS (8)
  1. AROMASINE [Suspect]
     Active Substance: EXEMESTANE
     Dosage: UNK
     Route: 048
     Dates: end: 20160803
  2. AFINITOR [Concomitant]
     Active Substance: EVEROLIMUS
     Dosage: UNK
     Dates: end: 20160728
  3. FRAGMINE [Concomitant]
     Active Substance: DALTEPARIN SODIUM
  4. METHYLPREDNISOLONE. [Concomitant]
     Active Substance: METHYLPREDNISOLONE
  5. PARACETAMOL [Suspect]
     Active Substance: ACETAMINOPHEN
     Dosage: UNK
     Route: 048
     Dates: end: 20160803
  6. DUROGESIC [Concomitant]
     Active Substance: FENTANYL
  7. LASILIX /00032601/ [Concomitant]
     Active Substance: FUROSEMIDE
  8. LYTOS [Suspect]
     Active Substance: CLODRONATE DISODIUM
     Dosage: UNK
     Route: 048
     Dates: end: 20160803

REACTIONS (2)
  - Cholestasis [Unknown]
  - Hepatocellular injury [Unknown]

NARRATIVE: CASE EVENT DATE: 20160803
